FAERS Safety Report 23638020 (Version 1)
Quarter: 2024Q1

REPORT INFORMATION
  Report Type: Spontaneous
  Country: US (occurrence: US)
  Receive Date: 20240315
  Receipt Date: 20240315
  Transmission Date: 20240410
  Serious: No
  Sender: FDA-Public Use
  Company Number: US-LANTHEUS MEDICAL IMAGING-LMI-2023-01479

PATIENT
  Age: 46 Year
  Sex: Male

DRUGS (1)
  1. PYLARIFY [Suspect]
     Active Substance: PIFLUFOLASTAT F-18
     Indication: Scan
     Dosage: 9.6 MILLICURIE
     Route: 042
     Dates: start: 20231208, end: 20231208

REACTIONS (1)
  - Drug ineffective [Recovered/Resolved]

NARRATIVE: CASE EVENT DATE: 20231208
